FAERS Safety Report 19229323 (Version 6)
Quarter: 2022Q3

REPORT INFORMATION
  Report Type: Spontaneous
  Country: US (occurrence: US)
  Receive Date: 20210507
  Receipt Date: 20220908
  Transmission Date: 20221027
  Serious: Yes (Hospitalization, Other)
  Sender: FDA-Public Use
  Company Number: US-SA-SAC20210504001529

PATIENT
  Age: 13 Year
  Sex: Male

DRUGS (10)
  1. ELOCTATE [Suspect]
     Active Substance: (1-743)-(1638-2332)-BLOOD-COAGULATION FACTOR VIII (SYNTHETIC HUMAN) FUSION PROTEIN WITH IMMUNOGLOBUL
     Indication: Factor VIII deficiency
     Dosage: 1350 IU, PRN
     Route: 042
     Dates: start: 201911
  2. ELOCTATE [Suspect]
     Active Substance: (1-743)-(1638-2332)-BLOOD-COAGULATION FACTOR VIII (SYNTHETIC HUMAN) FUSION PROTEIN WITH IMMUNOGLOBUL
     Indication: Factor VIII deficiency
     Dosage: 1350 IU, PRN
     Route: 042
     Dates: start: 201911
  3. ELOCTATE [Suspect]
     Active Substance: (1-743)-(1638-2332)-BLOOD-COAGULATION FACTOR VIII (SYNTHETIC HUMAN) FUSION PROTEIN WITH IMMUNOGLOBUL
     Indication: Haemorrhage
     Dosage: 1350 IU, Q4D
     Route: 042
     Dates: start: 201911
  4. ELOCTATE [Suspect]
     Active Substance: (1-743)-(1638-2332)-BLOOD-COAGULATION FACTOR VIII (SYNTHETIC HUMAN) FUSION PROTEIN WITH IMMUNOGLOBUL
     Indication: Haemorrhage
     Dosage: 1350 IU, Q4D
     Route: 042
     Dates: start: 201911
  5. ELOCTATE [Suspect]
     Active Substance: (1-743)-(1638-2332)-BLOOD-COAGULATION FACTOR VIII (SYNTHETIC HUMAN) FUSION PROTEIN WITH IMMUNOGLOBUL
     Indication: Medical procedure
     Dosage: 2000 U, PRN
     Route: 042
     Dates: start: 20191113
  6. ELOCTATE [Suspect]
     Active Substance: (1-743)-(1638-2332)-BLOOD-COAGULATION FACTOR VIII (SYNTHETIC HUMAN) FUSION PROTEIN WITH IMMUNOGLOBUL
     Indication: Medical procedure
     Dosage: 2000 U, PRN
     Route: 042
     Dates: start: 20191113
  7. ELOCTATE [Suspect]
     Active Substance: (1-743)-(1638-2332)-BLOOD-COAGULATION FACTOR VIII (SYNTHETIC HUMAN) FUSION PROTEIN WITH IMMUNOGLOBUL
     Dosage: 1350 IU DAY 1, 2 AND 4 (STRENGTH 245U)
     Route: 041
     Dates: start: 20211104
  8. ELOCTATE [Suspect]
     Active Substance: (1-743)-(1638-2332)-BLOOD-COAGULATION FACTOR VIII (SYNTHETIC HUMAN) FUSION PROTEIN WITH IMMUNOGLOBUL
     Dosage: 1350 IU DAY 1, 2 AND 4 (STRENGTH 245U)
     Route: 041
     Dates: start: 20211104
  9. ELOCTATE [Suspect]
     Active Substance: (1-743)-(1638-2332)-BLOOD-COAGULATION FACTOR VIII (SYNTHETIC HUMAN) FUSION PROTEIN WITH IMMUNOGLOBUL
     Dosage: 1350 IU (STRENGTH 1030U)
     Route: 042
     Dates: start: 20211110
  10. ELOCTATE [Suspect]
     Active Substance: (1-743)-(1638-2332)-BLOOD-COAGULATION FACTOR VIII (SYNTHETIC HUMAN) FUSION PROTEIN WITH IMMUNOGLOBUL
     Dosage: 1350 IU (STRENGTH 1030U)
     Route: 042
     Dates: start: 20211110

REACTIONS (7)
  - Intestinal haemorrhage [Unknown]
  - Haemorrhage [Recovered/Resolved]
  - Haemorrhage [Unknown]
  - Fall [Unknown]
  - Traumatic haemorrhage [Unknown]
  - Sinusitis [Unknown]
  - Muscle injury [Unknown]

NARRATIVE: CASE EVENT DATE: 20210425
